FAERS Safety Report 10358374 (Version 1)
Quarter: 2014Q3

REPORT INFORMATION
  Report Type: Spontaneous
  Country: US (occurrence: None)
  Receive Date: 20140730
  Receipt Date: 20140730
  Transmission Date: 20150326
  Serious: Yes (Other)
  Sender: FDA-Public Use
  Company Number: 2014-US-007230

PATIENT
  Age: 41 Year
  Sex: Female
  Weight: 70.3 kg

DRUGS (2)
  1. PROGESTERONE (PROGESTERONE) INJECTION [Concomitant]
  2. XYREM [Suspect]
     Active Substance: SODIUM OXYBATE
     Indication: NARCOLEPSY
     Route: 048
     Dates: start: 20140517, end: 2014

REACTIONS (21)
  - Bronchitis [None]
  - Chills [None]
  - Dyspnoea [None]
  - Tremor [None]
  - Crying [None]
  - Back disorder [None]
  - Hepatic pain [None]
  - Pain in extremity [None]
  - Clumsiness [None]
  - Back pain [None]
  - Arthralgia [None]
  - Post-traumatic stress disorder [None]
  - Flat affect [None]
  - Insomnia [None]
  - Somnolence [None]
  - Condition aggravated [None]
  - Pollakiuria [None]
  - Asthenia [None]
  - Dizziness [None]
  - Depression [None]
  - Night sweats [None]

NARRATIVE: CASE EVENT DATE: 20140517
